FAERS Safety Report 6354049-2 (Version None)
Quarter: 2009Q3

REPORT INFORMATION
  Report Type: 
  Country: None (occurrence: None)
  Receive Date: 20090914
  Receipt Date: 20071127
  Transmission Date: 20100115
  Serious: Yes (Other)
  Sender: FDA-Public Use
  Company Number: US-ASTRAZENECA-2006UW07937

PATIENT
  Age: 14366 Day
  Sex: Female
  Weight: 129.3 kg

DRUGS (18)
  1. SEROQUEL [Suspect]
     Indication: DEPRESSION
     Route: 048
     Dates: start: 19990101, end: 20080101
  2. SEROQUEL [Suspect]
     Indication: BIPOLAR DISORDER
     Route: 048
     Dates: start: 19990101, end: 20080101
  3. SEROQUEL [Suspect]
     Indication: SCHIZOPHRENIA
     Route: 048
     Dates: start: 19990101, end: 20080101
  4. SEROQUEL [Suspect]
     Dosage: DOSE 25 MG TO 300 MG
     Route: 048
     Dates: start: 19990101
  5. SEROQUEL [Suspect]
     Dosage: DOSE 25 MG TO 300 MG
     Route: 048
     Dates: start: 19990101
  6. SEROQUEL [Suspect]
     Dosage: DOSE 25 MG TO 300 MG
     Route: 048
     Dates: start: 19990101
  7. ABILIFY [Concomitant]
     Dates: start: 20000101
  8. PRAVASTATIN [Concomitant]
     Dosage: DAILY
  9. ASPIRIN [Concomitant]
     Dosage: DAILY
  10. ZOLOFT [Concomitant]
     Route: 048
  11. ATENOLOL [Concomitant]
     Dosage: DAILY
  12. SYNTHROID [Concomitant]
     Route: 048
  13. LIPITOR [Concomitant]
     Route: 048
  14. TYLENOL (CAPLET) [Concomitant]
     Dosage: 1 GRAIN EVERY FOUR HOURS
     Route: 048
  15. FERROUS SULFATE TAB [Concomitant]
  16. COLACE [Concomitant]
  17. GLUCOPHAGE [Concomitant]
  18. NORVASC [Concomitant]
     Indication: BLOOD PRESSURE
     Route: 048

REACTIONS (5)
  - BLOOD CHOLESTEROL INCREASED [None]
  - GASTROINTESTINAL HAEMORRHAGE [None]
  - HYPERGLYCAEMIA [None]
  - OBESITY [None]
  - TYPE 2 DIABETES MELLITUS [None]
